FAERS Safety Report 9305632 (Version 1)
Quarter: 2013Q2

REPORT INFORMATION
  Report Type: Spontaneous
  Country: US (occurrence: US)
  Receive Date: 20130523
  Receipt Date: 20130523
  Transmission Date: 20140414
  Serious: No
  Sender: FDA-Public Use
  Company Number: US-TEVA-407034USA

PATIENT
  Age: 53 Year
  Sex: Female
  Weight: 64.47 kg

DRUGS (2)
  1. PROAIR HFA [Suspect]
     Indication: BRONCHOSPASM
     Route: 055
     Dates: start: 20121201, end: 20121201
  2. LOSARTAN [Concomitant]
     Indication: HYPERTENSION
     Dosage: 50 MILLIGRAM DAILY;
     Route: 048

REACTIONS (1)
  - Drug effect decreased [Unknown]
